FAERS Safety Report 6200996-1 (Version None)
Quarter: 2009Q2

REPORT INFORMATION
  Report Type: 
  Country: None (occurrence: None)
  Receive Date: 20090525
  Receipt Date: 20090515
  Transmission Date: 20091009
  Serious: Yes (Other)
  Sender: FDA-Public Use
  Company Number: US-SP-2009-00696

PATIENT
  Age: 85 Year
  Sex: Female

DRUGS (7)
  1. THERACYS [Suspect]
     Indication: BLADDER CANCER
     Route: 043
     Dates: start: 20090120, end: 20090217
  2. THERACYS [Suspect]
     Route: 043
     Dates: start: 20090127
  3. THERACYS [Suspect]
     Indication: IMMUNISATION
     Route: 043
     Dates: start: 20090203, end: 20090217
  4. LEVOXYL [Concomitant]
  5. HUMALOG [Concomitant]
  6. POTASSIUM CHLORIDE [Concomitant]
  7. TENORETIC 100 [Concomitant]

REACTIONS (5)
  - DYSURIA [None]
  - HAEMATURIA [None]
  - HYDRONEPHROSIS [None]
  - POLLAKIURIA [None]
  - URTICARIA [None]
